FAERS Safety Report 6814688-9 (Version None)
Quarter: 2010Q2

REPORT INFORMATION
  Report Type: 
  Country: None (occurrence: None)
  Receive Date: 20100629
  Receipt Date: 20100610
  Transmission Date: 20101027
  Serious: Yes (Hospitalization, Other)
  Sender: FDA-Public Use
  Company Number: JPI-P-010391

PATIENT
  Age: 25 Year
  Sex: Female

DRUGS (7)
  1. XYREM [Suspect]
     Indication: SUICIDE ATTEMPT
     Dosage: 4.5 GM (2.25 GM, 2 IN 1 D), ORAL
     Route: 048
     Dates: start: 20100126, end: 20100101
  2. XYREM [Suspect]
     Indication: SUICIDE ATTEMPT
     Dosage: 4.5 GM (2.25 GM, 2 IN 1 D), ORAL
     Route: 048
     Dates: start: 20100302, end: 20100101
  3. XYREM [Suspect]
     Indication: SUICIDE ATTEMPT
     Dosage: 4.5 GM (2.25 GM, 2 IN 1 D), ORAL
     Route: 048
     Dates: start: 20100401
  4. VENLAFAXINE [Suspect]
     Indication: SUICIDE ATTEMPT
     Dosage: 75 MG, ORAL (37.5 MG, 2 IN 1 D) ORAL
     Route: 048
     Dates: start: 20050801, end: 20100101
  5. VENLAFAXINE [Suspect]
     Indication: SUICIDE ATTEMPT
     Dosage: 75 MG, ORAL (37.5 MG, 2 IN 1 D) ORAL
     Route: 048
     Dates: start: 20100302, end: 20100101
  6. VENLAFAXINE [Suspect]
     Indication: SUICIDE ATTEMPT
     Dosage: 75 MG, ORAL (37.5 MG, 2 IN 1 D) ORAL
     Route: 048
     Dates: start: 20100101
  7. LEVOTHYROXINE SODIUM [Concomitant]

REACTIONS (9)
  - ABNORMAL BEHAVIOUR [None]
  - AGITATION [None]
  - BLOOD PRESSURE SYSTOLIC INCREASED [None]
  - CONVULSION [None]
  - DEPRESSION [None]
  - EYE ROLLING [None]
  - HYPERTONIA [None]
  - SALIVARY HYPERSECRETION [None]
  - SUICIDE ATTEMPT [None]
